FAERS Safety Report 5768240-7 (Version None)
Quarter: 2008Q2

REPORT INFORMATION
  Report Type: 
  Country: None (occurrence: None)
  Receive Date: 20080612
  Receipt Date: 20080422
  Transmission Date: 20081010
  Serious: No
  Sender: FDA-Public Use
  Company Number: US-ABBOTT-07P-163-0378596-00

PATIENT
  Sex: Female
  Weight: 53.118 kg

DRUGS (10)
  1. HUMIRA [Suspect]
     Indication: CROHN'S DISEASE
     Dosage: AUG 2007 SYRINGE
     Route: 058
     Dates: start: 20070501, end: 20080422
  2. HUMIRA [Suspect]
     Dosage: SWITCHED TO PEN
     Route: 058
     Dates: start: 20080422
  3. MERCAPTOPURINE [Concomitant]
     Indication: CROHN'S DISEASE
     Dates: start: 20000101
  4. TYLOX [Concomitant]
     Indication: DRUG USE FOR UNKNOWN INDICATION
  5. DULOXETINE HYDROCHLORIDE [Concomitant]
     Indication: DRUG USE FOR UNKNOWN INDICATION
  6. M.V.I. [Concomitant]
     Indication: DRUG USE FOR UNKNOWN INDICATION
  7. VENLAFAXINE HCL [Concomitant]
     Indication: DEPRESSION
     Route: 048
     Dates: start: 20070501
  8. ALPRAZOLAM [Concomitant]
     Indication: INSOMNIA
     Route: 048
     Dates: start: 19980101
  9. CYANOCOBALAMIN-TANNIN COMPLEX [Concomitant]
     Indication: VITAMIN SUPPLEMENTATION
     Route: 058
     Dates: start: 20000101
  10. ARIPIPRAZOLE [Concomitant]
     Indication: DEPRESSION
     Route: 048
     Dates: start: 20080401

REACTIONS (6)
  - DRUG INEFFECTIVE [None]
  - INJECTION SITE ERYTHEMA [None]
  - INJECTION SITE INDURATION [None]
  - INJECTION SITE IRRITATION [None]
  - INJECTION SITE PRURITUS [None]
  - INJECTION SITE REACTION [None]
